FAERS Safety Report 20002867 (Version 1)
Quarter: 2021Q4

REPORT INFORMATION
  Report Type: Spontaneous
  Country: ES (occurrence: ES)
  Receive Date: 20211028
  Receipt Date: 20211028
  Transmission Date: 20220304
  Serious: Yes (Other)
  Sender: FDA-Public Use
  Company Number: None

PATIENT
  Age: 61 Year
  Sex: Female
  Weight: 39.6 kg

DRUGS (5)
  1. KEYTRUDA [Suspect]
     Active Substance: PEMBROLIZUMAB
     Indication: Lung adenocarcinoma stage III
     Dosage: 200 MILLIGRAM, CYCLICAL (STRENGTH: 25 MG/ML, CONCENTRATED SOLUTION FOR INJECTION, 1 VIAL OF 4ML, 200
     Route: 042
     Dates: start: 20210202, end: 20210202
  2. BECLOMETHASONE DIPROPIONATE\FORMOTEROL FUMARATE\GLYCOPYRROLATE [Concomitant]
     Active Substance: BECLOMETHASONE DIPROPIONATE\FORMOTEROL FUMARATE\GLYCOPYRROLATE
     Dosage: 2 DOSAGE FORM, Q12H, IN A PRESSURIZED CONTAINER, 1 INHALER OF 120 PUFFS
     Route: 055
     Dates: start: 20201217
  3. ATORVASTATINA STADA [Concomitant]
     Dosage: 10 MILLIGRAM, QD (GENERIC DRUG, 28 TABLETS)
     Route: 048
     Dates: start: 20200814
  4. ACETAMINOPHEN [Concomitant]
     Active Substance: ACETAMINOPHEN
     Dosage: 1 GRAM, PRN (AS NECESSARY), GENERIC DRUG , 40 TABLETS
     Route: 048
     Dates: start: 20210202
  5. METAMIZOLE MAGNESIUM [Concomitant]
     Active Substance: METAMIZOLE MAGNESIUM
     Dosage: 575 MILLIGRAM, PRN (AS NECESSARY), 20 CAPSULES
     Route: 048
     Dates: start: 20210202

REACTIONS (1)
  - Secondary hypothyroidism [Recovered/Resolved]

NARRATIVE: CASE EVENT DATE: 20210222
